FAERS Safety Report 6432761-4 (Version None)
Quarter: 2009Q4

REPORT INFORMATION
  Report Type: 
  Country: None (occurrence: None)
  Receive Date: 20091109
  Receipt Date: 20091103
  Transmission Date: 20100525
  Serious: Yes (Congenital Anomaly)
  Sender: FDA-Public Use
  Company Number: A0681533A

PATIENT
  Sex: Male

DRUGS (8)
  1. PAXIL [Suspect]
     Indication: DEPRESSION
     Dosage: 20MG PER DAY
     Dates: start: 19960801
  2. VITAMIN AND MINERAL PRENATAL SUPPLEMENT W/ FOLIC ACID CAP [Concomitant]
  3. XANAX [Concomitant]
     Dates: start: 19960101
  4. THYROID TAB [Concomitant]
     Dates: start: 19860101
  5. SYNTHROID [Concomitant]
  6. TERBUTALINE SULFATE [Concomitant]
     Dates: start: 19991101
  7. MAGNESIUM SULFATE [Concomitant]
     Dates: start: 19991101
  8. BETAMETHASONE [Concomitant]
     Dates: start: 19991101

REACTIONS (2)
  - BICUSPID AORTIC VALVE [None]
  - DRUG EXPOSURE DURING PREGNANCY [None]
